FAERS Safety Report 5693104-7 (Version None)
Quarter: 2008Q2

REPORT INFORMATION
  Report Type: 
  Country: None (occurrence: None)
  Receive Date: 20080401
  Receipt Date: 20080401
  Transmission Date: 20081010
  Serious: Yes (Other)
  Sender: FDA-Public Use
  Company Number: None

PATIENT
  Age: 47 Year
  Sex: Female
  Weight: 108.8633 kg

DRUGS (4)
  1. CLIMARA [Suspect]
     Indication: MENOPAUSAL SYMPTOMS
     Dosage: 0.025 1X WEEKLY TRANSDERMAL
     Route: 062
     Dates: start: 20060101
  2. CLIMARA [Suspect]
     Indication: MENOPAUSAL SYMPTOMS
     Dosage: 0.025 1X WEEKLY TRANSDERMAL
     Route: 062
     Dates: start: 20070101
  3. PRILOSEC [Concomitant]
  4. ALLERGAN [Concomitant]

REACTIONS (2)
  - PHARMACEUTICAL PRODUCT COMPLAINT [None]
  - RASH [None]
